FAERS Safety Report 5491386-8 (Version None)
Quarter: 2007Q4

REPORT INFORMATION
  Report Type: 
  Country: None (occurrence: None)
  Receive Date: 20071018
  Receipt Date: 20071012
  Transmission Date: 20080405
  Serious: Yes (Other)
  Sender: FDA-Public Use
  Company Number: 2007-04620

PATIENT
  Age: 27 Month
  Sex: Female

DRUGS (1)
  1. TRELSTAR DEPOT [Suspect]
     Indication: PRECOCIOUS PUBERTY
     Dosage: 3 MG EVERY 28 DAYS, INTRAMUSCULAR
     Route: 030
     Dates: start: 20070301

REACTIONS (2)
  - LEUKOPENIA [None]
  - NEUTROPENIA [None]
